FAERS Safety Report 8950510 (Version 5)
Quarter: 2013Q2

REPORT INFORMATION
  Report Type: Spontaneous
  Country: IE (occurrence: IE)
  Receive Date: 20121207
  Receipt Date: 20130606
  Transmission Date: 20140414
  Serious: Yes (Death, Hospitalization)
  Sender: FDA-Public Use
  Company Number: IE-MILLENNIUM PHARMACEUTICALS, INC.-2012-08529

PATIENT
  Sex: 0

DRUGS (5)
  1. VELCADE [Suspect]
     Indication: PLASMA CELL MYELOMA
     Dosage: 1.3 MG/M2, UNK
     Route: 042
     Dates: start: 20120907, end: 20120915
  2. ESOMEPRAZOLE [Concomitant]
     Indication: GASTRITIS
     Route: 048
  3. COVERSYL                           /00790701/ [Concomitant]
     Indication: HYPERTENSION
     Route: 048
  4. INDAPAMIDE [Concomitant]
     Indication: HYPERTENSION
     Dosage: 1.5 MG, UNK
  5. ZOPICLONE [Concomitant]
     Dosage: 7.5 MG, UNK

REACTIONS (7)
  - Guillain-Barre syndrome [Fatal]
  - Peripheral sensorimotor neuropathy [Not Recovered/Not Resolved]
  - Constipation [Unknown]
  - Urinary tract infection [Unknown]
  - Bacteraemia [Unknown]
  - Bacillus test positive [Unknown]
  - Diarrhoea [Recovered/Resolved]
